FAERS Safety Report 4810888-8 (Version None)
Quarter: 2005Q4

REPORT INFORMATION
  Report Type: 
  Country: None (occurrence: None)
  Receive Date: 20051027
  Receipt Date: 20050822
  Transmission Date: 20060501
  Serious: Yes (Hospitalization)
  Sender: FDA-Public Use
  Company Number: AU-BOEHRINGER INGELHEIM PHARMACEUTICALS, INC.-2005-BP-14645AU

PATIENT
  Sex: Male

DRUGS (2)
  1. MOBIC [Suspect]
     Route: 048
  2. NIL [Concomitant]

REACTIONS (4)
  - ANAEMIA [None]
  - GASTRIC MUCOSAL LESION [None]
  - HAEMORRHAGE [None]
  - MELAENA [None]
